FAERS Safety Report 5814456-0 (Version None)
Quarter: 2008Q3

REPORT INFORMATION
  Report Type: 
  Country: None (occurrence: None)
  Receive Date: 20080718
  Receipt Date: 20080716
  Transmission Date: 20090109
  Serious: Yes (Life-Threatening)
  Sender: FDA-Public Use
  Company Number: FR-BRISTOL-MYERS SQUIBB COMPANY-14265813

PATIENT
  Age: 78 Year
  Sex: Female

DRUGS (7)
  1. APROVEL FILM-COATED/RM TABS 300 MG [Suspect]
     Indication: HYPERTENSION
     Dosage: 1 DOSAGE FORM = 300 MILLIGRAM TABLET 1TAB IN MORNING AND 1 TAB IN EVENING.
     Route: 048
     Dates: start: 20080630, end: 20080702
  2. ZANIDIP [Concomitant]
  3. CORDARONE [Concomitant]
  4. NORSET [Concomitant]
  5. PRAVADUAL [Concomitant]
  6. LASIX [Concomitant]
     Dates: start: 20070615
  7. LEVOTHYROX [Concomitant]

REACTIONS (2)
  - ANAPHYLACTIC SHOCK [None]
  - ANGIOEDEMA [None]
